FAERS Safety Report 9554198 (Version 2)
Quarter: 2013Q4

REPORT INFORMATION
  Report Type: Spontaneous
  Country: DE (occurrence: DE)
  Receive Date: 20130925
  Receipt Date: 20131022
  Transmission Date: 20140711
  Serious: Yes (Hospitalization)
  Sender: FDA-Public Use
  Company Number: PHHY2013DE106878

PATIENT
  Sex: Male

DRUGS (2)
  1. TEGRETAL RETARD [Suspect]
     Dosage: 400 MG, QD
  2. TEGRETAL RETARD [Suspect]
     Dosage: 200 MG, BID

REACTIONS (1)
  - Convulsion [Unknown]
